FAERS Safety Report 10080654 (Version 1)
Quarter: 2014Q2

REPORT INFORMATION
  Report Type: Spontaneous
  Country: DE (occurrence: None)
  Receive Date: 20140414
  Receipt Date: 20140414
  Transmission Date: 20141212
  Serious: Yes (Disabling)
  Sender: FDA-Public Use
  Company Number: DE-DEXPHARM-20140171

PATIENT
  Sex: Female

DRUGS (6)
  1. OMEPRAZOLE [Suspect]
     Indication: BREAST ENLARGEMENT
     Dosage: 20 MG MILLIGRAM(S) SEP. DOSAGES/INTERVAL: 1 DAYS
     Route: 048
     Dates: start: 201104, end: 20131014
  2. COUMADIN [Concomitant]
  3. PROTHYRID [Concomitant]
  4. SOTALOL [Concomitant]
  5. TEBONINE [Concomitant]
  6. TILIDINE [Concomitant]

REACTIONS (2)
  - Breast enlargement [None]
  - Gynaecomastia [None]
